FAERS Safety Report 16922497 (Version 2)
Quarter: 2019Q4

REPORT INFORMATION
  Report Type: Spontaneous
  Country: US (occurrence: US)
  Receive Date: 20191016
  Receipt Date: 20191028
  Transmission Date: 20200122
  Serious: No
  Sender: FDA-Public Use
  Company Number: US-AMGEN-USASP2019169548

PATIENT
  Age: 29 Year
  Sex: Female

DRUGS (1)
  1. AIMOVIG [Suspect]
     Active Substance: ERENUMAB-AOOE
     Indication: MIGRAINE PROPHYLAXIS
     Dosage: 140 MILLIGRAM, QMO (70 MG, TAKEN TWICE MONTHLY)
     Route: 058
     Dates: start: 20180904

REACTIONS (3)
  - Device malfunction [Unknown]
  - Incorrect dose administered by device [Unknown]
  - Off label use [Unknown]

NARRATIVE: CASE EVENT DATE: 2018
